FAERS Safety Report 6063727-4 (Version None)
Quarter: 2009Q1

REPORT INFORMATION
  Report Type: 
  Country: None (occurrence: None)
  Receive Date: 20090130
  Receipt Date: 20090121
  Transmission Date: 20090719
  Serious: Yes (Death, Hospitalization, Other)
  Sender: FDA-Public Use
  Company Number: 2008-03754

PATIENT
  Age: 76 Year
  Sex: Male
  Weight: 76.3 kg

DRUGS (4)
  1. VELCADE [Suspect]
     Indication: COLORECTAL CANCER
     Dosage: 1 MG/M2, IV BOLUS
     Route: 040
     Dates: start: 20080930, end: 20081003
  2. 17-AAG (17ALLYLAMINO-17-DEMETHOXYGELDANAMYCIN) INFUSION [Suspect]
     Indication: COLORECTAL CANCER
     Dosage: 200 MG/M2, INTRAVENOUS
     Route: 042
     Dates: start: 20080930, end: 20081003
  3. COMPAZINE [Concomitant]
  4. ROBITUSSIN (GUAIFENSEIN) [Concomitant]

REACTIONS (19)
  - ACUTE HEPATIC FAILURE [None]
  - BLOOD CREATINE PHOSPHOKINASE INCREASED [None]
  - BRAIN NATRIURETIC PEPTIDE INCREASED [None]
  - CARDIAC ENZYMES INCREASED [None]
  - CARDIOMYOPATHY [None]
  - COLITIS [None]
  - EJECTION FRACTION DECREASED [None]
  - GASTROINTESTINAL DISORDER [None]
  - HYPONATRAEMIA [None]
  - LACTIC ACIDOSIS [None]
  - METABOLIC ACIDOSIS [None]
  - MULTI-ORGAN FAILURE [None]
  - RECTAL HAEMORRHAGE [None]
  - RENAL FAILURE ACUTE [None]
  - RESPIRATORY ACIDOSIS [None]
  - RESPIRATORY FAILURE [None]
  - RIGHT VENTRICULAR DYSFUNCTION [None]
  - SEPTIC SHOCK [None]
  - TROPONIN T INCREASED [None]
